FAERS Safety Report 8470283-X (Version None)
Quarter: 2012Q2

REPORT INFORMATION
  Report Type: 
  Country: None (occurrence: None)
  Receive Date: 20120627
  Receipt Date: 20120620
  Transmission Date: 20120825
  Serious: Yes (Hospitalization, Other)
  Sender: FDA-Public Use
  Company Number: BR-US-EMD SERONO, INC.-7139015

PATIENT
  Sex: Male

DRUGS (2)
  1. REBIF [Suspect]
     Indication: RELAPSING-REMITTING MULTIPLE SCLEROSIS
     Dates: start: 20011203
  2. REBIF [Suspect]
     Dates: start: 20120101

REACTIONS (5)
  - MYOCARDIAL INFARCTION [None]
  - DIABETES MELLITUS [None]
  - PAIN [None]
  - PYREXIA [None]
  - HYPERTENSION [None]
